FAERS Safety Report 6193138-2 (Version None)
Quarter: 2009Q2

REPORT INFORMATION
  Report Type: 
  Country: None (occurrence: None)
  Receive Date: 20090514
  Receipt Date: 20090514
  Transmission Date: 20091009
  Serious: No
  Sender: FDA-Public Use
  Company Number: None

PATIENT
  Age: 45 Year
  Sex: Female
  Weight: 136.5327 kg

DRUGS (2)
  1. SEROQUEL [Suspect]
     Indication: BIPOLAR DISORDER
     Dosage: 50MG QHS PO  2.5 MONTHS
     Route: 048
  2. SEROQUEL [Suspect]
     Indication: INSOMNIA
     Dosage: 50MG QHS PO  2.5 MONTHS
     Route: 048

REACTIONS (2)
  - ABNORMAL DREAMS [None]
  - SLEEP TALKING [None]
